FAERS Safety Report 4978031-2 (Version None)
Quarter: 2006Q2

REPORT INFORMATION
  Report Type: 
  Country: None (occurrence: None)
  Receive Date: 20060420
  Receipt Date: 20050112
  Transmission Date: 20061013
  Serious: Yes (Hospitalization)
  Sender: FDA-Public Use
  Company Number: US-MERCK-0501USA01897

PATIENT
  Age: 53 Year
  Sex: Female
  Weight: 166 kg

DRUGS (2)
  1. VIOXX [Suspect]
     Indication: ARTHRITIS
     Route: 048
     Dates: start: 20010101, end: 20030101
  2. VIOXX [Suspect]
     Route: 048
     Dates: start: 20010123

REACTIONS (12)
  - ABDOMINAL PAIN [None]
  - ANXIETY [None]
  - BACK PAIN [None]
  - DYSPNOEA EXERTIONAL [None]
  - HEMIPARESIS [None]
  - INSOMNIA [None]
  - JOINT SWELLING [None]
  - LOWER GASTROINTESTINAL HAEMORRHAGE [None]
  - POLYP [None]
  - SINUS DISORDER [None]
  - SPINAL COLUMN STENOSIS [None]
  - VASCULAR INJURY [None]
